FAERS Safety Report 6997603-7 (Version None)
Quarter: 2010Q3

REPORT INFORMATION
  Report Type: 
  Country: None (occurrence: None)
  Receive Date: 20100918
  Receipt Date: 20091130
  Transmission Date: 20110219
  Serious: No
  Sender: FDA-Public Use
  Company Number: US-WYE-H11995809

PATIENT
  Sex: Male
  Weight: 61.29 kg

DRUGS (10)
  1. PROTONIX [Suspect]
     Indication: GASTROOESOPHAGEAL REFLUX DISEASE
     Route: 048
     Dates: start: 20091001
  2. VIAGRA [Concomitant]
  3. LEVOTHYROXINE SODIUM [Concomitant]
  4. ZANTAC [Concomitant]
  5. FOLIC ACID [Concomitant]
  6. ASPIRIN [Concomitant]
  7. TYLENOL [Concomitant]
  8. TUMS [Concomitant]
  9. PREDNISONE [Concomitant]
  10. DIAZEPAM [Concomitant]

REACTIONS (1)
  - ABDOMINAL PAIN UPPER [None]
